FAERS Safety Report 25306985 (Version 1)
Quarter: 2025Q2

REPORT INFORMATION
  Report Type: Report from Study
  Country: US (occurrence: US)
  Receive Date: 20250513
  Receipt Date: 20250513
  Transmission Date: 20250716
  Serious: Yes (Hospitalization)
  Sender: GALDERMA
  Company Number: US-GALDERMA-US2025007268

PATIENT

DRUGS (1)
  1. NEMOLIZUMAB [Suspect]
     Active Substance: NEMOLIZUMAB
     Indication: Dermatitis atopic
     Route: 058
     Dates: start: 20250327, end: 20250327

REACTIONS (3)
  - Hypertension [Unknown]
  - Peripheral swelling [Unknown]
  - Inappropriate schedule of product administration [Recovered/Resolved]

NARRATIVE: CASE EVENT DATE: 20250101
